FAERS Safety Report 17965250 (Version 1)
Quarter: 2020Q2

REPORT INFORMATION
  Report Type: Spontaneous
  Country: US (occurrence: US)
  Receive Date: 20200630
  Receipt Date: 20200630
  Transmission Date: 20200714
  Serious: Yes (Hospitalization)
  Sender: FDA-Public Use
  Company Number: US-PFIZER INC-2019-06212

PATIENT
  Age: 37 Year
  Sex: Male
  Weight: 134.2 kg

DRUGS (16)
  1. BRAFTOVI [Suspect]
     Active Substance: ENCORAFENIB
     Dosage: 450 MG, 1X/DAY
     Route: 048
     Dates: start: 20190702
  2. OXYCODONE HYDROCHLORIDE. [Concomitant]
     Active Substance: OXYCODONE HYDROCHLORIDE
     Dosage: 15 MG
  3. FUROSEMIDE. [Concomitant]
     Active Substance: FUROSEMIDE
     Dosage: 40 MG
  4. MEKTOVI [Suspect]
     Active Substance: BINIMETINIB
     Dosage: 45 MG, 2X/DAY
     Route: 048
     Dates: start: 20190702
  5. WARFARIN [Concomitant]
     Active Substance: WARFARIN
     Dosage: 5 MG
  6. OXYCONTIN [Concomitant]
     Active Substance: OXYCODONE HYDROCHLORIDE
     Dosage: 60 MG
  7. MEKTOVI [Suspect]
     Active Substance: BINIMETINIB
     Dosage: UNK
  8. BRAFTOVI [Suspect]
     Active Substance: ENCORAFENIB
     Dosage: 450 MG, 1X/DAY
     Route: 048
  9. MEKTOVI [Suspect]
     Active Substance: BINIMETINIB
     Dosage: UNK
  10. METOPROLOL. [Concomitant]
     Active Substance: METOPROLOL
     Dosage: 50 MG
  11. SENNA GEN [Concomitant]
     Active Substance: SENNOSIDES
     Dosage: 8.6 MG
  12. BRAFTOVI [Suspect]
     Active Substance: ENCORAFENIB
     Dosage: UNK
  13. BRAFTOVI [Suspect]
     Active Substance: ENCORAFENIB
     Dosage: UNK
  14. PANTOPRAZOLE SODIUM. [Concomitant]
     Active Substance: PANTOPRAZOLE SODIUM
     Dosage: 40 MG
  15. MEKTOVI [Suspect]
     Active Substance: BINIMETINIB
     Dosage: 45 MG, 2X/DAY
     Route: 048
  16. TRAZODONE [Concomitant]
     Active Substance: TRAZODONE HYDROCHLORIDE
     Dosage: 50 MG

REACTIONS (4)
  - Vomiting [Unknown]
  - Neoplasm progression [Unknown]
  - Peripheral swelling [Not Recovered/Not Resolved]
  - Product dose omission [Unknown]
